FAERS Safety Report 19363687 (Version 1)
Quarter: 2021Q2

REPORT INFORMATION
  Report Type: Spontaneous
  Country: US (occurrence: US)
  Receive Date: 20210602
  Receipt Date: 20210602
  Transmission Date: 20210717
  Serious: No
  Sender: FDA-Public Use
  Company Number: US-ENDO PHARMACEUTICALS INC-2021-001333

PATIENT
  Sex: Male

DRUGS (1)
  1. SAPROPTERIN DIHYDROCHLORIDE [Suspect]
     Active Substance: SAPROPTERIN DIHYDROCHLORIDE
     Indication: PHENYLKETONURIA
     Dosage: UNK UNKNOWN, UNKNOWN
     Route: 065
     Dates: start: 202012

REACTIONS (3)
  - Amino acid level increased [Unknown]
  - Drug ineffective [Unknown]
  - Product substitution issue [Unknown]
